FAERS Safety Report 24162416 (Version 3)
Quarter: 2024Q3

REPORT INFORMATION
  Report Type: Spontaneous
  Country: US (occurrence: US)
  Receive Date: 20240801
  Receipt Date: 20240927
  Transmission Date: 20241017
  Serious: Yes (Other)
  Sender: PFIZER
  Company Number: US-PFIZER INC-202400224701

PATIENT
  Age: 72 Year
  Sex: Female
  Weight: 55.79 kg

DRUGS (2)
  1. ESTRING [Suspect]
     Active Substance: ESTRADIOL
     Indication: Prophylaxis urinary tract infection
     Dosage: UNKNOWN DOSE VAGINAL EVERY THREE MONTHS TAKE OUT CLEAN IT AND PUT BACK IN
     Route: 067
     Dates: start: 202402
  2. ESTRING [Suspect]
     Active Substance: ESTRADIOL
     Indication: Vaginal disorder
     Dosage: UNK
     Route: 067
     Dates: start: 20240725

REACTIONS (2)
  - Dyschezia [Recovering/Resolving]
  - Vulvovaginal pain [Unknown]

NARRATIVE: CASE EVENT DATE: 20240101
